FAERS Safety Report 5596710-3 (Version None)
Quarter: 2008Q1

REPORT INFORMATION
  Report Type: 
  Country: None (occurrence: None)
  Receive Date: 20080118
  Receipt Date: 20080107
  Transmission Date: 20080703
  Serious: Yes (Other)
  Sender: FDA-Public Use
  Company Number: US-PFIZER INC-2008002236

PATIENT
  Sex: Female
  Weight: 137 kg

DRUGS (9)
  1. LYRICA [Suspect]
     Indication: PERIPHERAL NERVE INJURY
     Route: 048
  2. NEURONTIN [Suspect]
  3. NEXIUM [Concomitant]
  4. XENICAL [Concomitant]
  5. XANAX [Concomitant]
  6. CYMBALTA [Concomitant]
  7. ACTOS [Concomitant]
  8. VYTORIN [Concomitant]
  9. LORTAB [Concomitant]

REACTIONS (7)
  - DRUG INEFFECTIVE [None]
  - HYPOAESTHESIA [None]
  - INSOMNIA [None]
  - NAUSEA [None]
  - PAIN [None]
  - PARAESTHESIA [None]
  - SENSORY LOSS [None]
